FAERS Safety Report 21492951 (Version 1)
Quarter: 2022Q4

REPORT INFORMATION
  Report Type: Spontaneous
  Country: US (occurrence: US)
  Receive Date: 20221021
  Receipt Date: 20221021
  Transmission Date: 20230113
  Serious: Yes (Other)
  Sender: FDA-Public Use
  Company Number: US-SA-2022SA427518

PATIENT
  Sex: Female

DRUGS (2)
  1. ACETAMINOPHEN\DIPHENHYDRAMINE [Suspect]
     Active Substance: ACETAMINOPHEN\DIPHENHYDRAMINE
     Dosage: UNK, 60 TABLETS
     Route: 048
  2. METFORMIN HYDROCHLORIDE [Suspect]
     Active Substance: METFORMIN HYDROCHLORIDE
     Dosage: 90 G
     Route: 048

REACTIONS (4)
  - Anuria [Unknown]
  - Toxicity to various agents [Unknown]
  - Intentional overdose [Unknown]
  - Metabolic acidosis [Recovering/Resolving]
